FAERS Safety Report 4503959-7 (Version None)
Quarter: 2004Q3

REPORT INFORMATION
  Report Type: 
  Country: None (occurrence: None)
  Receive Date: 20040927
  Receipt Date: 20040816
  Transmission Date: 20050211
  Serious: No
  Sender: FDA-Public Use
  Company Number: USA040875737

PATIENT
  Age: 56 Year
  Sex: Female

DRUGS (2)
  1. STRATTERA [Suspect]
     Indication: ATTENTION DEFICIT/HYPERACTIVITY DISORDER
     Dosage: 40 MG/1 DAY
  2. FLUOXETINE [Concomitant]

REACTIONS (3)
  - ENDOMETRIAL HYPERTROPHY [None]
  - THROMBOSIS [None]
  - UTERINE HAEMORRHAGE [None]
